FAERS Safety Report 5187084-0 (Version None)
Quarter: 2006Q4

REPORT INFORMATION
  Report Type: 
  Country: None (occurrence: None)
  Receive Date: 20061214
  Receipt Date: 20061201
  Transmission Date: 20070319
  Serious: Yes (Life-Threatening, Hospitalization, Disabling)
  Sender: FDA-Public Use
  Company Number: 2006113160

PATIENT
  Age: 67 Year
  Sex: Female
  Weight: 60 kg

DRUGS (9)
  1. SUTENT [Suspect]
     Indication: RENAL CELL CARCINOMA STAGE UNSPECIFIED
     Dosage: 50 MG, ORAL
     Route: 048
     Dates: start: 20060824, end: 20060918
  2. DIMENHYDRINATE [Concomitant]
  3. PIRETANIDE (PIRETANIDE) [Concomitant]
  4. MCP ^ALIUD PHARMA^ (METOCLOPRAMIDE HYDROCHLORIDE) [Concomitant]
  5. SODIUM CARBONATE (SODIUM CARBONATE) [Concomitant]
  6. BUPERORPHINE (BUPRERORPINE) [Concomitant]
  7. ZOLEDRONATE (ZOLEDRONATE) [Concomitant]
  8. DARBEPOETIN ALFA (DARBEPOETIN ALFA) [Concomitant]
  9. INTERFERON (INTERFERON) [Concomitant]

REACTIONS (45)
  - ACUTE HEPATIC FAILURE [None]
  - AMYLOIDOSIS [None]
  - ANGINA PECTORIS [None]
  - AORTIC VALVE INCOMPETENCE [None]
  - ATRIAL HYPERTROPHY [None]
  - BLOOD PARATHYROID HORMONE INCREASED [None]
  - BONE PAIN [None]
  - CARDIAC DISORDER [None]
  - CARDIAC FAILURE ACUTE [None]
  - CARDIOMYOPATHY [None]
  - CARDIOTOXICITY [None]
  - CORONARY ARTERY DISEASE [None]
  - CORONARY ARTERY STENOSIS [None]
  - DIALYSIS [None]
  - DILATATION ATRIAL [None]
  - DRUG TOXICITY [None]
  - DYSURIA [None]
  - HEPATIC CONGESTION [None]
  - HEPATITIS [None]
  - HYPERPARATHYROIDISM [None]
  - HYPOCALCAEMIA [None]
  - ILL-DEFINED DISORDER [None]
  - INCREASED APPETITE [None]
  - LEUKOPENIA [None]
  - MITRAL VALVE INCOMPETENCE [None]
  - MYOCARDIAL ISCHAEMIA [None]
  - NAUSEA [None]
  - OEDEMA PERIPHERAL [None]
  - OLIGURIA [None]
  - PERICARDIAL EFFUSION [None]
  - PULMONARY CONGESTION [None]
  - RADIATION INJURY [None]
  - RENAL DISORDER [None]
  - RENAL FAILURE ACUTE [None]
  - RENAL INJURY [None]
  - RHABDOMYOLYSIS [None]
  - SACRAL PAIN [None]
  - THROMBOCYTOPENIA [None]
  - TROPONIN T INCREASED [None]
  - URINARY INCONTINENCE [None]
  - URINARY TRACT INFECTION [None]
  - VAGINAL FISTULA [None]
  - VENTRICULAR HYPERTROPHY [None]
  - VOMITING [None]
  - WEIGHT INCREASED [None]
